FAERS Safety Report 19290540 (Version 5)
Quarter: 2021Q2

REPORT INFORMATION
  Report Type: Spontaneous
  Country: US (occurrence: US)
  Receive Date: 20210522
  Receipt Date: 20210621
  Transmission Date: 20210717
  Serious: Yes (Hospitalization, Other)
  Sender: FDA-Public Use
  Company Number: US-UNITED THERAPEUTICS-UNT-2021-009192

PATIENT
  Age: 54 Year
  Sex: Male
  Weight: 97.51 kg

DRUGS (4)
  1. REMODULIN [Suspect]
     Active Substance: TREPROSTINIL
     Indication: PULMONARY ARTERIAL HYPERTENSION
     Dosage: UNK, CONTINUING
     Route: 058
     Dates: start: 20190110
  2. REMODULIN [Suspect]
     Active Substance: TREPROSTINIL
     Dosage: 0.087 ?G/KG, CONTINUING
     Route: 058
  3. SILDENAFIL. [Concomitant]
     Active Substance: SILDENAFIL
     Indication: PRODUCT USED FOR UNKNOWN INDICATION
     Dosage: UNK
     Route: 065
  4. METHAMPHETAMINE [Suspect]
     Active Substance: METHAMPHETAMINE
     Indication: PRODUCT USED FOR UNKNOWN INDICATION
     Dosage: UNK
     Route: 065

REACTIONS (15)
  - Respiratory failure [Unknown]
  - Pain in jaw [Unknown]
  - Drug abuse [Unknown]
  - Arthralgia [Unknown]
  - Thirst [Unknown]
  - Headache [Unknown]
  - Right ventricular failure [Unknown]
  - Infusion site induration [Unknown]
  - Fluid overload [Unknown]
  - Fall [Recovered/Resolved]
  - Infusion site pain [Unknown]
  - Dyspnoea [Unknown]
  - Dizziness [Unknown]
  - Pain [Unknown]
  - Dyspnoea exertional [Unknown]

NARRATIVE: CASE EVENT DATE: 202105
